FAERS Safety Report 5158162-7 (Version None)
Quarter: 2006Q4

REPORT INFORMATION
  Report Type: 
  Country: None (occurrence: None)
  Receive Date: 20060915
  Receipt Date: 20060915
  Transmission Date: 20070319
  Serious: Yes (Disabling)
  Sender: FDA-Public Use
  Company Number: None

PATIENT
  Age: 47 Year
  Sex: Female
  Weight: 72.5755 kg

DRUGS (1)
  1. CALLUS ELIMINATOR  PROLINE COSMETICS, INC [Suspect]
     Indication: HYPERKERATOSIS
     Dosage: SMALL AMT  OTHER
     Route: 050
     Dates: start: 20060501, end: 20060821

REACTIONS (5)
  - ACCIDENTAL EXPOSURE [None]
  - CAUSTIC INJURY [None]
  - EPISTAXIS [None]
  - NASAL CONGESTION [None]
  - RHINALGIA [None]
